FAERS Safety Report 7372523-7 (Version None)
Quarter: 2011Q1

REPORT INFORMATION
  Report Type: 
  Country: None (occurrence: None)
  Receive Date: 20110324
  Receipt Date: 20110323
  Transmission Date: 20110831
  Serious: Yes (Life-Threatening, Hospitalization)
  Sender: FDA-Public Use
  Company Number: DE-B.I. PHARMACEUTICALS,INC./RIDGEFIELD-2011-DE-01380DE

PATIENT
  Sex: Male
  Weight: 112 kg

DRUGS (6)
  1. PRADAXA [Suspect]
     Indication: ATRIAL FIBRILLATION
     Dosage: 150 MG
     Route: 048
     Dates: start: 20101210, end: 20110210
  2. AMLODIPINE [Concomitant]
     Dosage: 10 MG
     Dates: start: 20060101
  3. SPIRIVA [Concomitant]
     Dates: start: 20060101
  4. DIGIMERCK [Concomitant]
     Dosage: 0.07 MG
     Dates: start: 20060101
  5. DELIX [Concomitant]
     Dosage: 10 MG
     Dates: start: 20060101
  6. METOPROLOL SUCCINATE [Concomitant]
     Dosage: 90 MG
     Dates: start: 20060101

REACTIONS (5)
  - CARDIAC ASTHMA [None]
  - RASH MACULAR [None]
  - DERMATITIS [None]
  - NOCTURNAL DYSPNOEA [None]
  - LEFT VENTRICULAR FAILURE [None]
